FAERS Safety Report 24095260 (Version 3)
Quarter: 2024Q3

REPORT INFORMATION
  Report Type: Spontaneous
  Country: BR (occurrence: BR)
  Receive Date: 20240716
  Receipt Date: 20240806
  Transmission Date: 20241016
  Serious: Yes (Other)
  Sender: CELLTRION
  Company Number: BR-CELLTRION INC.-2024BR017022

PATIENT

DRUGS (2)
  1. INFLIXIMAB [Suspect]
     Active Substance: INFLIXIMAB
     Indication: Crohn^s disease
     Dosage: 5 AMPOULES (500 MG) EVERY 2 MONTHS
     Route: 042
     Dates: start: 20220919
  2. INFLIXIMAB [Suspect]
     Active Substance: INFLIXIMAB
     Dosage: 5 AMPOULES (500 MG) EVERY 2 MONTHS
     Route: 042
     Dates: start: 20240710

REACTIONS (4)
  - Crohn^s disease [Recovered/Resolved]
  - Oral infection [Recovered/Resolved]
  - Intentional dose omission [Recovered/Resolved]
  - Overdose [Unknown]

NARRATIVE: CASE EVENT DATE: 20240620
